FAERS Safety Report 8318568-1 (Version None)
Quarter: 2012Q2

REPORT INFORMATION
  Report Type: 
  Country: None (occurrence: None)
  Receive Date: 20120425
  Receipt Date: 20120418
  Transmission Date: 20120825
  Serious: Yes (Hospitalization)
  Sender: FDA-Public Use
  Company Number: GER/UKI/12/0023990

PATIENT
  Age: 75 Year
  Sex: Female
  Weight: 90 kg

DRUGS (4)
  1. ADCAL-D3 (LEKOVIT CA) [Concomitant]
  2. OLANZAPINE [Suspect]
     Indication: BIPOLAR I DISORDER
     Dosage: 5 MG, 1 IN 1 D, ORAL
     Route: 048
     Dates: end: 20120410
  3. VALPROATE SODIUM [Suspect]
     Indication: BIPOLAR I DISORDER
     Dosage: 300 MG, 1 IN 1 D, ORAL
     Route: 048
     Dates: end: 20120410
  4. AMLODIPINE [Concomitant]

REACTIONS (1)
  - PANCYTOPENIA [None]
